FAERS Safety Report 23851234 (Version 4)
Quarter: 2025Q1

REPORT INFORMATION
  Report Type: Spontaneous
  Country: CA (occurrence: CA)
  Receive Date: 20240514
  Receipt Date: 20250324
  Transmission Date: 20250408
  Serious: Yes (Death, Life-Threatening, Hospitalization, Disabling, Other)
  Sender: CHATTEM
  Company Number: CA-SAKK-2022SA428951AA

PATIENT
  Age: 80 Year
  Sex: Male
  Weight: 69 kg

DRUGS (53)
  1. LANSOPRAZOLE [Suspect]
     Active Substance: LANSOPRAZOLE
     Indication: Antacid therapy
     Dosage: DOSE DESCRIPTION : 30 MG, QD
     Route: 048
  2. ACETAMINOPHEN [Suspect]
     Active Substance: ACETAMINOPHEN
     Indication: Product used for unknown indication
     Route: 065
  3. ALUMINUM HYDROXIDE\MAGNESIUM HYDROXIDE [Suspect]
     Active Substance: ALUMINUM HYDROXIDE\MAGNESIUM HYDROXIDE
     Indication: Constipation
     Route: 054
  4. PYRIDOXINE HYDROCHLORIDE [Suspect]
     Active Substance: PYRIDOXINE HYDROCHLORIDE
     Indication: Vitamin supplementation
     Route: 048
  5. LIDOCAINE [Suspect]
     Active Substance: LIDOCAINE
     Indication: Constipation
     Route: 054
  6. MELATONIN [Suspect]
     Active Substance: MELATONIN
     Indication: Sleep disorder therapy
     Dosage: DOSE DESCRIPTION : 3 MG, QD
     Route: 048
  7. SODIUM PICOSULFATE [Suspect]
     Active Substance: SODIUM PICOSULFATE
     Indication: Constipation
     Route: 054
  8. BISACODYL [Suspect]
     Active Substance: BISACODYL
     Indication: Constipation
     Route: 054
  9. POLYETHYLENE GLYCOL 3350 [Suspect]
     Active Substance: POLYETHYLENE GLYCOL 3350
     Indication: Constipation
     Dosage: DOSE DESCRIPTION : 17 G, QD
     Route: 048
  10. METAMIZOLE SODIUM [Suspect]
     Active Substance: METAMIZOLE SODIUM
     Indication: Vitamin supplementation
     Route: 042
  11. ALLOPURINOL [Suspect]
     Active Substance: ALLOPURINOL
     Indication: Blood uric acid increased
     Dosage: DOSE DESCRIPTION : 1 DF, QD
     Route: 048
  12. AMIODARONE HYDROCHLORIDE [Suspect]
     Active Substance: AMIODARONE HYDROCHLORIDE
     Indication: Ventricular fibrillation
     Dosage: DOSE DESCRIPTION : 150 MG, QD
     Route: 042
  13. BETAMETHASONE [Suspect]
     Active Substance: BETAMETHASONE
     Indication: Swelling
     Route: 061
  14. CALCIUM\CHOLECALCIFEROL [Suspect]
     Active Substance: CALCIUM\CHOLECALCIFEROL
     Indication: Product used for unknown indication
     Route: 065
  15. CEFTRIAXONE SODIUM [Suspect]
     Active Substance: CEFTRIAXONE SODIUM
     Indication: Bacterial infection
     Dosage: DOSE DESCRIPTION : 2 G, QD
     Route: 042
  16. DISTIGMINE BROMIDE [Suspect]
     Active Substance: DISTIGMINE BROMIDE
     Indication: Dyspnoea
     Dosage: DOSE DESCRIPTION : 1 IU, QD
     Route: 048
  17. DOBUTAMINE [Suspect]
     Active Substance: DOBUTAMINE HYDROCHLORIDE
     Indication: Cardiogenic shock
     Route: 042
  18. FURAZOLIDONE [Suspect]
     Active Substance: FURAZOLIDONE
     Indication: Product used for unknown indication
     Route: 042
  19. GABAPENTIN [Suspect]
     Active Substance: GABAPENTIN
     Indication: Neuralgia
     Dosage: DOSE DESCRIPTION : 100 MG, QD
     Route: 048
  20. DEXTROSE [Suspect]
     Active Substance: DEXTROSE MONOHYDRATE
     Indication: Nutritional supplementation
     Route: 042
  21. HYDROMORPHONE HYDROCHLORIDE [Suspect]
     Active Substance: HYDROMORPHONE HYDROCHLORIDE
     Indication: Analgesic therapy
     Dosage: DOSE DESCRIPTION : 6 MG, Q6H
     Route: 058
  22. INSULIN ASPART [Suspect]
     Active Substance: INSULIN ASPART
     Indication: Diabetes mellitus
     Route: 058
  23. METRONIDAZOLE [Suspect]
     Active Substance: METRONIDAZOLE
     Indication: Bacterial infection
     Dosage: DOSE DESCRIPTION : 500 MG, Q8H
     Route: 048
  24. ONDANSETRON [Suspect]
     Active Substance: ONDANSETRON
     Indication: Nausea
     Dosage: DOSE DESCRIPTION : 12 MG, Q8H
     Route: 042
  25. OSELTAMIVIR PHOSPHATE [Suspect]
     Active Substance: OSELTAMIVIR PHOSPHATE
     Indication: Product used for unknown indication
     Route: 054
  26. SIMVASTATIN [Suspect]
     Active Substance: SIMVASTATIN
     Indication: Blood cholesterol increased
     Dosage: DOSE DESCRIPTION : 40 MG, QD
     Route: 048
  27. DALTEPARIN SODIUM [Suspect]
     Active Substance: DALTEPARIN SODIUM
     Indication: Pulmonary embolism
     Route: 065
  28. DEXTROSE [Suspect]
     Active Substance: DEXTROSE MONOHYDRATE
     Indication: Nutritional supplementation
     Route: 042
  29. NOREPINEPHRINE [Suspect]
     Active Substance: NOREPINEPHRINE
     Indication: Stress
     Route: 042
  30. FENOTEROL\IPRATROPIUM [Suspect]
     Active Substance: FENOTEROL\IPRATROPIUM
     Indication: Dyspnoea
     Dosage: DOSE DESCRIPTION : 1 DF, Q8H
     Route: 050
  31. FLUTICASONE [Suspect]
     Active Substance: FLUTICASONE
     Indication: Nutritional supplementation
     Route: 065
  32. HEPARIN [Suspect]
     Active Substance: HEPARIN SODIUM
     Indication: Anticoagulant therapy
     Route: 065
  33. DARBEPOETIN ALFA [Suspect]
     Active Substance: DARBEPOETIN ALFA
     Indication: Anaemia
     Dosage: DOSE DESCRIPTION : 0.71 UG, Q15D
     Route: 042
  34. CALCITRIOL [Suspect]
     Active Substance: CALCITRIOL
     Indication: Vitamin D
     Dosage: DOSE DESCRIPTION : 0.25 UG, QD
     Route: 048
  35. ALLANTOIN [Suspect]
     Active Substance: ALLANTOIN
     Indication: Product used for unknown indication
     Route: 048
  36. INSULIN DEGLUDEC [Suspect]
     Active Substance: INSULIN DEGLUDEC
     Indication: Diabetes mellitus
     Route: 058
  37. IPRATROPIUM [Suspect]
     Active Substance: IPRATROPIUM
     Indication: Dyspnoea
     Dosage: DOSE DESCRIPTION : 1 DF, QD
     Route: 055
  38. IPRATROPIUM [Suspect]
     Active Substance: IPRATROPIUM
     Dosage: DOSE DESCRIPTION : UNK, Q6H
     Route: 065
  39. LYPRESSIN [Suspect]
     Active Substance: LYPRESSIN
     Indication: Drug therapy
     Route: 042
  40. MANNITOL [Suspect]
     Active Substance: MANNITOL
     Indication: Nutritional supplementation
     Route: 042
  41. HERBALS\PAULLINIA CUPANA SEED [Suspect]
     Active Substance: HERBALS\PAULLINIA CUPANA SEED
     Indication: Nutritional supplementation
     Route: 042
  42. PHYTONADIONE [Suspect]
     Active Substance: PHYTONADIONE
     Indication: Vitamin supplementation
     Route: 042
  43. POLYETHYLENE GLYCOL 4000 [Suspect]
     Active Substance: POLYETHYLENE GLYCOL 4000
     Indication: Constipation
     Route: 048
  44. ALBUTEROL [Suspect]
     Active Substance: ALBUTEROL
     Indication: Chronic obstructive pulmonary disease
     Dosage: DOSE DESCRIPTION : UNK UNK, Q6H
     Route: 055
  45. ACETAMINOPHEN [Suspect]
     Active Substance: ACETAMINOPHEN
     Indication: Analgesic therapy
     Dosage: DOSE DESCRIPTION : 650 MG, QD
     Route: 048
  46. SODIUM CITRATE [Suspect]
     Active Substance: SODIUM CITRATE
     Indication: Thrombosis
     Route: 065
  47. SODIUM PHOSPHATE [Suspect]
     Active Substance: SODIUM PHOSPHATE
     Indication: Constipation
     Route: 054
  48. UMECLIDINIUM [Suspect]
     Active Substance: UMECLIDINIUM
     Indication: Dyspnoea
     Dosage: DOSE DESCRIPTION : 1 IU, QD
     Route: 048
  49. VILANTEROL [Suspect]
     Active Substance: VILANTEROL
     Indication: Product used for unknown indication
     Route: 065
  50. ASCORBIC ACID [Suspect]
     Active Substance: ASCORBIC ACID
     Indication: Constipation
     Dosage: DOSE DESCRIPTION : 17 G, QD
     Route: 065
  51. WARFARIN [Suspect]
     Active Substance: WARFARIN
     Indication: Thrombosis
     Dosage: DOSE DESCRIPTION : 2 G, QD
     Route: 048
  52. XANTOFYL PALMITATE [Suspect]
     Active Substance: XANTOFYL PALMITATE
     Indication: Nutritional supplementation
     Route: 042
  53. IPRATROPIUM BROMIDE\XYLOMETAZOLINE HYDROCHLORIDE [Suspect]
     Active Substance: IPRATROPIUM BROMIDE\XYLOMETAZOLINE HYDROCHLORIDE
     Indication: Product used for unknown indication
     Route: 065

REACTIONS (19)
  - Cardiogenic shock [Fatal]
  - Abdominal distension [Fatal]
  - Abdominal pain [Fatal]
  - Appendicitis [Fatal]
  - Appendicolith [Fatal]
  - Ascites [Fatal]
  - Condition aggravated [Fatal]
  - Constipation [Fatal]
  - Dry mouth [Fatal]
  - General physical health deterioration [Fatal]
  - Multiple organ dysfunction syndrome [Fatal]
  - Nausea [Fatal]
  - Sepsis [Fatal]
  - Somnolence [Fatal]
  - Stress [Fatal]
  - Ventricular fibrillation [Fatal]
  - Vomiting [Fatal]
  - Blood phosphorus increased [Fatal]
  - Hyponatraemia [Fatal]
